FAERS Safety Report 10154854 (Version 2)
Quarter: 2014Q2

REPORT INFORMATION
  Report Type: Other
  Country: GB (occurrence: GB)
  Receive Date: 20140506
  Receipt Date: 20140527
  Transmission Date: 20141212
  Serious: Yes (Other)
  Sender: FDA-Public Use
  Company Number: GB-US-EMD SERONO, INC.-7289704

PATIENT
  Age: 37 Year
  Sex: Female

DRUGS (2)
  1. REBIF [Suspect]
     Indication: MULTIPLE SCLEROSIS
     Dates: start: 200410
  2. REBIF [Suspect]
     Dates: start: 200410, end: 20120901

REACTIONS (3)
  - Glomerulonephritis membranoproliferative [Unknown]
  - Post procedural haemorrhage [Unknown]
  - Proteinuria [Recovered/Resolved]
